FAERS Safety Report 8895696 (Version 1)
Quarter: 2012Q4

REPORT INFORMATION
  Report Type: 
  Country: AU (occurrence: AU)
  Receive Date: 20121108
  Receipt Date: 20121108
  Transmission Date: 20130627
  Serious: Yes (Life-Threatening)
  Sender: FDA-Public Use
  Company Number: AU-BAXTER-2012BAX021900

PATIENT
  Age: 59 Year
  Sex: Male
  Weight: 92 kg

DRUGS (3)
  1. GLUCOSE 5% [Suspect]
     Indication: MEDICATION DILUTION
     Route: 042
     Dates: start: 20120827, end: 20120827
  2. OXALIPLATIN [Suspect]
     Indication: CHEMOTHERAPY
     Route: 042
     Dates: start: 20120827, end: 20120827
  3. OXALIPLATIN [Suspect]
     Indication: COLORECTAL CANCER

REACTIONS (4)
  - Chest discomfort [Recovered/Resolved]
  - Feeling hot [Recovered/Resolved]
  - Cough [Recovered/Resolved]
  - Flushing [Recovered/Resolved]
